FAERS Safety Report 5281659-6 (Version None)
Quarter: 2007Q1

REPORT INFORMATION
  Report Type: 
  Country: None (occurrence: None)
  Receive Date: 20070330
  Receipt Date: 20070322
  Transmission Date: 20070707
  Serious: Yes (Death)
  Sender: FDA-Public Use
  Company Number: CZ-AMGEN-UK216294

PATIENT
  Age: 52 Year
  Sex: Female

DRUGS (15)
  1. ARANESP [Suspect]
     Route: 058
     Dates: start: 20070118
  2. BLEOMYCIN [Suspect]
  3. ETOPOSIDE [Suspect]
  4. DOXORUBICIN HCL [Suspect]
  5. CYCLOPHOSPHAMIDE [Suspect]
  6. VINCRISTINE [Suspect]
  7. PROCARBAZINE [Suspect]
  8. PREDNISONE [Suspect]
  9. NEUPOGEN [Concomitant]
  10. KYTRIL [Concomitant]
  11. CALCIUM CHLORATUM [Concomitant]
  12. FOLIC ACID [Concomitant]
  13. ALLOPURINOL [Concomitant]
  14. FLUCONAZOLE [Concomitant]
  15. BACTRIM [Concomitant]

REACTIONS (1)
  - CARDIAC FAILURE [None]
